FAERS Safety Report 12890600 (Version 1)
Quarter: 2016Q4

REPORT INFORMATION
  Report Type: Spontaneous
  Country: US (occurrence: US)
  Receive Date: 20161027
  Receipt Date: 20161027
  Transmission Date: 20170207
  Serious: No
  Sender: FDA-Public Use
  Company Number: US-JAZZ-2016-US-015811

PATIENT
  Sex: Male

DRUGS (12)
  1. XYREM [Suspect]
     Active Substance: SODIUM OXYBATE
     Indication: NARCOLEPSY
     Dosage: 3.5 G, BID
     Route: 048
     Dates: start: 200211, end: 200705
  2. ADVIL [Suspect]
     Active Substance: IBUPROFEN
     Indication: PRODUCT USED FOR UNKNOWN INDICATION
  3. NORVASC [Concomitant]
     Active Substance: AMLODIPINE BESYLATE
  4. OXYCODONE [Concomitant]
     Active Substance: OXYCODONE
  5. FLOMAX [Suspect]
     Active Substance: TAMSULOSIN HYDROCHLORIDE
     Indication: PRODUCT USED FOR UNKNOWN INDICATION
     Dosage: UNK
     Dates: start: 20020101, end: 20160706
  6. ALLOPURINOL. [Concomitant]
     Active Substance: ALLOPURINOL
  7. ZOLOFT [Concomitant]
     Active Substance: SERTRALINE HYDROCHLORIDE
  8. XYREM [Suspect]
     Active Substance: SODIUM OXYBATE
     Indication: CATAPLEXY
     Dosage: 4.5 G, BID
     Route: 048
     Dates: start: 200705
  9. DEXEDRINE [Concomitant]
     Active Substance: DEXTROAMPHETAMINE SULFATE
  10. TYLENOL [Concomitant]
     Active Substance: ACETAMINOPHEN
  11. LISINOPRIL. [Concomitant]
     Active Substance: LISINOPRIL
  12. TYLENOL WITH CODEINE [Concomitant]
     Active Substance: ACETAMINOPHEN\CODEINE PHOSPHATE

REACTIONS (7)
  - Gout [Not Recovered/Not Resolved]
  - Initial insomnia [Unknown]
  - Wrong technique in product usage process [Unknown]
  - Unevaluable event [Unknown]
  - Muscle disorder [Unknown]
  - Drug ineffective [Unknown]
  - Blood cholesterol decreased [Unknown]
